FAERS Safety Report 17094101 (Version 1)
Quarter: 2019Q4

REPORT INFORMATION
  Report Type: Spontaneous
  Country: US (occurrence: US)
  Receive Date: 20191129
  Receipt Date: 20191129
  Transmission Date: 20200122
  Serious: No
  Sender: FDA-Public Use
  Company Number: US-TEVA-2019-US-1145138

PATIENT
  Sex: Female

DRUGS (4)
  1. AMANTADINE. [Concomitant]
     Active Substance: AMANTADINE HYDROCHLORIDE
  2. LEVODOPA/CARBIDOPA [Concomitant]
     Active Substance: CARBIDOPA\LEVODOPA
  3. RASAGILINE. [Suspect]
     Active Substance: RASAGILINE
     Route: 065
  4. NORTHERA [Interacting]
     Active Substance: DROXIDOPA

REACTIONS (4)
  - Erythema [Unknown]
  - Flushing [Unknown]
  - Drug interaction [Unknown]
  - Urinary tract infection [Unknown]
